FAERS Safety Report 9623985 (Version 1)
Quarter: 2013Q4

REPORT INFORMATION
  Report Type: Spontaneous
  Country: US (occurrence: US)
  Receive Date: 20131015
  Receipt Date: 20131015
  Transmission Date: 20140711
  Serious: No
  Sender: FDA-Public Use
  Company Number: US-BAUSCH-BL-2013-004868

PATIENT
  Age: 87 Year
  Sex: Female

DRUGS (3)
  1. LATANOPROST OPHTHALMIC SOLUTION 0.005% [Suspect]
     Indication: GLAUCOMA
     Dosage: 1 DROP; ONCE AT BEDTIME; RIGHT EYE
     Route: 047
     Dates: start: 201209, end: 201209
  2. LATANOPROST OPHTHALMIC SOLUTION 0.005% [Suspect]
     Dosage: 1 DROP; ONCE AT BEDTIME; LEFT EYE
     Route: 047
     Dates: start: 201209, end: 201209
  3. LATANOPROST OPHTHALMIC SOLUTION 0.005% [Suspect]
     Dosage: DROP; OPHTHALMIC
     Route: 047

REACTIONS (2)
  - Balance disorder [Recovered/Resolved]
  - Dizziness [Recovered/Resolved]
